FAERS Safety Report 5707583-X (Version None)
Quarter: 2008Q2

REPORT INFORMATION
  Report Type: 
  Country: None (occurrence: None)
  Receive Date: 20080411
  Receipt Date: 20070223
  Transmission Date: 20081010
  Serious: Yes (Other)
  Sender: FDA-Public Use
  Company Number: 8020881

PATIENT
  Age: 49 Year
  Sex: Male

DRUGS (2)
  1. METHYLPHENIDATE HCL [Suspect]
     Indication: ATTENTION DEFICIT/HYPERACTIVITY DISORDER
     Dosage: 20 MG 3/D PO
     Route: 048
     Dates: start: 19890101
  2. RITALIN [Suspect]
     Indication: ATTENTION DEFICIT/HYPERACTIVITY DISORDER
     Dates: start: 20010101

REACTIONS (5)
  - ASTHENIA [None]
  - NERVOUSNESS [None]
  - OEDEMA PERIPHERAL [None]
  - RENAL PAIN [None]
  - TINNITUS [None]
